FAERS Safety Report 21179668 (Version 1)
Quarter: 2022Q3

REPORT INFORMATION
  Report Type: Spontaneous
  Country: DE (occurrence: DE)
  Receive Date: 20220805
  Receipt Date: 20220805
  Transmission Date: 20221026
  Serious: Yes (Other)
  Sender: FDA-Public Use
  Company Number: DE-ALLERGAN-2225594US

PATIENT
  Sex: Male

DRUGS (1)
  1. BOTULINUM TOXIN TYPE A [Suspect]
     Active Substance: BOTULINUM TOXIN TYPE A
     Indication: Abdominal hernia
     Dosage: 100 UNITS, SINGLE

REACTIONS (3)
  - Seroma [Recovered/Resolved]
  - Infection [Recovered/Resolved]
  - Off label use [Unknown]
